FAERS Safety Report 9914691 (Version 1)
Quarter: 2014Q1

REPORT INFORMATION
  Report Type: Spontaneous
  Country: US (occurrence: US)
  Receive Date: 20140220
  Receipt Date: 20140220
  Transmission Date: 20141002
  Serious: Yes (Other)
  Sender: FDA-Public Use
  Company Number: 2014SP000450

PATIENT
  Age: 30 Year
  Sex: Female
  Weight: 91 kg

DRUGS (8)
  1. LATUDA [Suspect]
     Indication: SCHIZOAFFECTIVE DISORDER
     Route: 048
     Dates: start: 201401
  2. LATUDA [Suspect]
     Indication: SCHIZOAFFECTIVE DISORDER
     Route: 048
     Dates: start: 201311, end: 201401
  3. LATUDA [Suspect]
     Indication: SCHIZOAFFECTIVE DISORDER
     Route: 048
     Dates: start: 201305, end: 201311
  4. LAMICTAL [Suspect]
     Dates: end: 201401
  5. MOBIC [Concomitant]
     Indication: PRODUCT USED FOR UNKNOWN INDICATION
  6. COGENTIN [Concomitant]
     Indication: AKATHISIA
     Route: 048
  7. LORAZEPAM [Concomitant]
     Indication: INSOMNIA
  8. TOPAMAX [Concomitant]
     Indication: PRODUCT USED FOR UNKNOWN INDICATION

REACTIONS (2)
  - Hepatic enzyme increased [Not Recovered/Not Resolved]
  - Drug ineffective for unapproved indication [None]
